FAERS Safety Report 4509437-3 (Version None)
Quarter: 2004Q4

REPORT INFORMATION
  Report Type: 
  Country: None (occurrence: None)
  Receive Date: 20041025
  Receipt Date: 20040709
  Transmission Date: 20050328
  Serious: Yes (Other)
  Sender: FDA-Public Use
  Company Number: US-JNJFOC-20040702844

PATIENT
  Age: 81 Year
  Sex: Female

DRUGS (5)
  1. INFLIXIMAB (INFLIXIMAB, RECOMBINANT) LYOPHILIZED POWDER [Suspect]
     Indication: RHEUMATOID ARTHRITIS
     Dosage: INTRAVENOUS
     Route: 042
     Dates: start: 20010731, end: 20030801
  2. INFLIXIMAB (INFLIXIMAB, RECOMBINANT) LYOPHILIZED POWDER [Suspect]
     Indication: RHEUMATOID ARTHRITIS
     Dosage: INTRAVENOUS
     Route: 042
     Dates: start: 20040301
  3. METHOTREXATE SODIUM [Concomitant]
  4. PREDNISONE [Concomitant]
  5. CELEBREX [Concomitant]

REACTIONS (2)
  - ARTHRITIS BACTERIAL [None]
  - OSTEOMYELITIS [None]
